FAERS Safety Report 10947908 (Version 1)
Quarter: 2015Q1

REPORT INFORMATION
  Report Type: Spontaneous
  Country: DE (occurrence: DE)
  Receive Date: 20150324
  Receipt Date: 20150324
  Transmission Date: 20150721
  Serious: Yes (Other)
  Sender: FDA-Public Use
  Company Number: DE-AMGEN-DEUSP2015007287

PATIENT
  Age: 57 Year
  Sex: Female

DRUGS (2)
  1. ENBREL [Suspect]
     Active Substance: ETANERCEPT
     Indication: RHEUMATOID ARTHRITIS
     Dosage: 25 MG, WEEKLY
     Route: 065
     Dates: start: 20141020, end: 20150120
  2. ENBREL [Suspect]
     Active Substance: ETANERCEPT
     Dosage: 10 MG, EVERY 2-3 WEEKS
     Route: 065
     Dates: start: 20150120

REACTIONS (5)
  - Anaphylactic shock [Recovered/Resolved]
  - Tracheal oedema [Recovered/Resolved]
  - Erythema [Recovered/Resolved]
  - Injection site reaction [Unknown]
  - Dyspnoea [Recovered/Resolved]

NARRATIVE: CASE EVENT DATE: 20150127
